FAERS Safety Report 4301210-4 (Version None)
Quarter: 2004Q1

REPORT INFORMATION
  Report Type: 
  Country: None (occurrence: None)
  Receive Date: 20040218
  Receipt Date: 20031119
  Transmission Date: 20041129
  Serious: No
  Sender: FDA-Public Use
  Company Number: 2003-11-1340

PATIENT
  Age: 54 Year
  Sex: Male
  Weight: 70.7611 kg

DRUGS (5)
  1. PEG-INTRON [Suspect]
     Indication: HEPATITIS C
     Dosage: 120  MCG QW
     Route: 058
     Dates: start: 20021001, end: 20031001
  2. REBETOL [Suspect]
     Indication: HEPATITIS C
     Dosage: 1000 MG QD
     Route: 048
     Dates: start: 20021001, end: 20031001
  3. AMBIEN [Concomitant]
  4. IBUPROFEN [Concomitant]
  5. TYLENOL (CAPLET) [Concomitant]

REACTIONS (2)
  - JOINT SWELLING [None]
  - UNEXPECTED THERAPEUTIC DRUG EFFECT [None]
